FAERS Safety Report 10755895 (Version 1)
Quarter: 2015Q1

REPORT INFORMATION
  Report Type: Spontaneous
  Country: BR (occurrence: BR)
  Receive Date: 20150202
  Receipt Date: 20150202
  Transmission Date: 20150721
  Serious: Yes (Other)
  Sender: FDA-Public Use
  Company Number: BR-PFIZER INC-2015038331

PATIENT
  Age: 54 Year
  Sex: Female
  Weight: 79 kg

DRUGS (3)
  1. ARCOXIA [Concomitant]
     Active Substance: ETORICOXIB
     Indication: PAIN
     Dosage: UNK
     Dates: start: 201412
  2. SELENE (CYPROTERONE ACETATE/ETHINYLESTRADIOL) [Concomitant]
     Indication: PAIN
     Dosage: 1 INJECTION, EVERY 5 DAYS
     Dates: start: 201412
  3. CELEBRA [Suspect]
     Active Substance: CELECOXIB
     Dosage: 1 TABLET (200 MG), EVERY 12 HOURS
     Route: 048
     Dates: start: 2002

REACTIONS (2)
  - Intervertebral disc protrusion [Unknown]
  - Nerve compression [Unknown]

NARRATIVE: CASE EVENT DATE: 2002
